FAERS Safety Report 17959441 (Version 2)
Quarter: 2020Q2

REPORT INFORMATION
  Report Type: Spontaneous
  Country: IR (occurrence: IR)
  Receive Date: 20200629
  Receipt Date: 20200630
  Transmission Date: 20200714
  Serious: No
  Sender: FDA-Public Use
  Company Number: IR-SA-2020SA167316

PATIENT

DRUGS (3)
  1. METFORMIN [Concomitant]
     Active Substance: METFORMIN HYDROCHLORIDE
     Dosage: 500 MG
     Route: 065
     Dates: start: 2018
  2. OMNIC [Suspect]
     Active Substance: TAMSULOSIN HYDROCHLORIDE
     Indication: BENIGN PROSTATIC HYPERPLASIA
     Dosage: 0.4 MG, QD
     Route: 048
     Dates: start: 20200617, end: 20200619
  3. LOSARTAN. [Concomitant]
     Active Substance: LOSARTAN
     Dosage: 100 MG
     Route: 065
     Dates: start: 2019

REACTIONS (7)
  - Dry mouth [Recovering/Resolving]
  - Abdominal distension [Recovering/Resolving]
  - Palpitations [Recovering/Resolving]
  - Lethargy [Recovering/Resolving]
  - Vertigo [Recovering/Resolving]
  - Orthostatic hypotension [Unknown]
  - Tachycardia [Unknown]

NARRATIVE: CASE EVENT DATE: 20200617
